FAERS Safety Report 7817886-0 (Version None)
Quarter: 2011Q4

REPORT INFORMATION
  Report Type: 
  Country: None (occurrence: None)
  Receive Date: 20111017
  Receipt Date: 20111013
  Transmission Date: 20120403
  Serious: Yes (Life-Threatening)
  Sender: FDA-Public Use
  Company Number: US-BRISTOL-MYERS SQUIBB COMPANY-16126138

PATIENT
  Age: 73 Year
  Sex: Male
  Weight: 78 kg

DRUGS (11)
  1. LANTUS [Concomitant]
  2. LISINOPRIL [Concomitant]
  3. CARBOPLATIN [Suspect]
     Indication: NON-SMALL CELL LUNG CANCER
     Dosage: LAST DOSE ON 06SEP2011
     Route: 042
     Dates: start: 20110725, end: 20110913
  4. PANTOPRAZOLE [Concomitant]
  5. CREON [Concomitant]
  6. PACLITAXEL [Suspect]
     Indication: NON-SMALL CELL LUNG CANCER
     Dosage: LAST DOSE ON 06SEP2011
     Route: 042
     Dates: start: 20110725, end: 20110913
  7. NOVOLOG [Concomitant]
  8. CARVEDILOL [Concomitant]
  9. CETIRIZINE HCL [Concomitant]
  10. BEVACIZUMAB [Suspect]
     Indication: NON-SMALL CELL LUNG CANCER
     Dosage: LAST DOSE ON 06SEP2011
     Route: 042
     Dates: start: 20110725, end: 20110913
  11. AUGMENTIN '125' [Concomitant]

REACTIONS (1)
  - SUICIDAL IDEATION [None]
